FAERS Safety Report 19535363 (Version 3)
Quarter: 2021Q3

REPORT INFORMATION
  Report Type: Report from Study
  Country: US (occurrence: US)
  Receive Date: 20210713
  Receipt Date: 20210830
  Transmission Date: 20211014
  Serious: Yes (Hospitalization, Other)
  Sender: FDA-Public Use
  Company Number: US-PFIZER INC-2021816648

PATIENT
  Age: 18 Year
  Sex: Female
  Weight: 67.7 kg

DRUGS (26)
  1. CEFIXIME. [Concomitant]
     Active Substance: CEFIXIME
     Indication: DIARRHOEA
     Dosage: 400 MG
     Route: 048
     Dates: start: 20210610, end: 20210623
  2. PANTOPRAZOLE [Concomitant]
     Active Substance: PANTOPRAZOLE
     Indication: GASTROOESOPHAGEAL REFLUX DISEASE
     Dosage: 40 MG, DAILY
     Route: 042
     Dates: start: 20210629
  3. TALZENNA [Suspect]
     Active Substance: TALAZOPARIB TOSYLATE
     Dosage: 1000 UG, DAILY
     Dates: start: 20210611, end: 20210615
  4. NYSTATIN. [Concomitant]
     Active Substance: NYSTATIN
     Indication: THERAPEUTIC GARGLE
     Dosage: UNK, 4X/DAY
     Dates: start: 20210115
  5. SEPTRA [Concomitant]
     Active Substance: SULFAMETHOXAZOLE\TRIMETHOPRIM
     Indication: PNEUMOCYSTIS JIROVECII PNEUMONIA
     Dosage: 1.5 TAB BID MTW
     Route: 048
     Dates: start: 20210614
  6. ONIVYDE [Suspect]
     Active Substance: IRINOTECAN HYDROCHLORIDE
     Indication: SARCOMA
     Dosage: 167 MG, SINGLE DAY 1
     Route: 042
     Dates: start: 20210610, end: 20210610
  7. DEXAMETHASONE. [Concomitant]
     Active Substance: DEXAMETHASONE
     Indication: VOMITING
     Dosage: 10 MG
     Route: 042
     Dates: start: 20210617, end: 20210617
  8. ONDANSETRON [Concomitant]
     Active Substance: ONDANSETRON
     Indication: VOMITING
     Dosage: 8 MG, Q8H PRN
     Route: 048
  9. ONDANSETRON [Concomitant]
     Active Substance: ONDANSETRON
     Dosage: 8 MG, Q8H
     Route: 042
     Dates: start: 20210629
  10. GABAPENTIN. [Concomitant]
     Active Substance: GABAPENTIN
     Indication: NEURALGIA
     Dosage: 300 MG, 3X/DAY
     Route: 048
     Dates: start: 20210607
  11. METHADONE [Concomitant]
     Active Substance: METHADONE HYDROCHLORIDE
     Dosage: 5 MG, Q12H
     Route: 048
     Dates: start: 20210607
  12. OMEPRAZOLE. [Concomitant]
     Active Substance: OMEPRAZOLE
     Indication: GASTROOESOPHAGEAL REFLUX DISEASE
     Dosage: 20 MG, DAILY
     Route: 048
     Dates: start: 20210525, end: 20210629
  13. CEFEPIME [Concomitant]
     Active Substance: CEFEPIME HYDROCHLORIDE
     Indication: ANTIBIOTIC THERAPY
     Dosage: 2000 MG, SINGLE
     Route: 042
     Dates: start: 20210629, end: 20210629
  14. DIPHENHYDRAMINE. [Concomitant]
     Active Substance: DIPHENHYDRAMINE
     Indication: VOMITING
     Dosage: 25 MG, AS NEEDED
     Route: 042
     Dates: start: 20210615
  15. LOPERAMIDE [Concomitant]
     Active Substance: LOPERAMIDE
     Indication: DIARRHOEA
     Dosage: 2 MG, 3X/DAY
     Route: 048
     Dates: start: 20210613
  16. METFORMIN [Concomitant]
     Active Substance: METFORMIN HYDROCHLORIDE
     Indication: DIABETES MELLITUS
     Dosage: 500 MG, QHS
     Route: 048
     Dates: start: 20210318
  17. TALZENNA [Suspect]
     Active Substance: TALAZOPARIB TOSYLATE
     Indication: SARCOMA
     Dosage: 500 UG, 2X/DAY, ON D1 ONLY
     Dates: start: 20210610, end: 20210610
  18. METOPROLOL. [Concomitant]
     Active Substance: METOPROLOL
     Dosage: 37.5 MG, 2X/DAY
     Route: 048
     Dates: start: 20200122, end: 20210617
  19. HYDROMORPHONE [Concomitant]
     Active Substance: HYDROMORPHONE
     Dosage: 4 MG, AS NEEDED
     Route: 048
     Dates: start: 20210607
  20. SIMETHICONE (DIMETHICONE) [Concomitant]
     Active Substance: DIMETHICONE
     Indication: FLATULENCE
     Dosage: 160 MG, TID PRN
     Route: 048
  21. POTASSIUM PHOSPHATE [POTASSIUM PHOSPHATE DIBASIC;POTASSIUM PHOSPHATE M [Concomitant]
     Indication: DEHYDRATION
     Dosage: 60 ML/HR
     Route: 042
  22. ONIVYDE [Suspect]
     Active Substance: IRINOTECAN HYDROCHLORIDE
     Indication: ALVEOLAR RHABDOMYOSARCOMA
     Dosage: 167 MG, SINGLE DAY 8
     Route: 042
     Dates: start: 20210617, end: 20210617
  23. SERTRALINE [Concomitant]
     Active Substance: SERTRALINE HYDROCHLORIDE
     Indication: DEPRESSION
     Dosage: 150 MG, DAILY
     Route: 048
     Dates: start: 20210519
  24. NORMAL SALINE [Concomitant]
     Active Substance: SODIUM CHLORIDE
     Indication: DEHYDRATION
     Dosage: 1000 ML
     Route: 042
     Dates: start: 20210622, end: 20210622
  25. HEPARIN FLUSH [Concomitant]
     Active Substance: HEPARIN SODIUM
     Dosage: 30 UNITS, PRN
     Route: 042
  26. KCL [Concomitant]
     Active Substance: POTASSIUM CHLORIDE
     Indication: DEHYDRATION
     Dosage: 60 ML/HR
     Route: 042

REACTIONS (1)
  - Abdominal discomfort [Unknown]
